FAERS Safety Report 6876325-7 (Version None)
Quarter: 2010Q3

REPORT INFORMATION
  Report Type: 
  Country: None (occurrence: None)
  Receive Date: 20100727
  Receipt Date: 20070712
  Transmission Date: 20110219
  Serious: Yes (Hospitalization, Other)
  Sender: FDA-Public Use
  Company Number: US-PFIZER INC-2006118278

PATIENT
  Sex: Female
  Weight: 108.9 kg

DRUGS (5)
  1. CELEBREX [Suspect]
     Indication: PAIN
     Dates: start: 20010119
  2. VIOXX [Suspect]
     Indication: PAIN
     Dates: start: 20000906
  3. DYAZIDE [Concomitant]
     Dates: start: 19981112, end: 20030811
  4. PREMARIN [Concomitant]
     Dates: start: 19990122, end: 20021026
  5. SYNTHROID [Concomitant]
     Dates: start: 19981107, end: 20021026

REACTIONS (2)
  - CARDIAC FAILURE CONGESTIVE [None]
  - MYOCARDIAL INFARCTION [None]
